FAERS Safety Report 23277173 (Version 3)
Quarter: 2024Q1

REPORT INFORMATION
  Report Type: Spontaneous
  Country: IN (occurrence: IN)
  Receive Date: 20231208
  Receipt Date: 20240304
  Transmission Date: 20240410
  Serious: Yes (Other)
  Sender: FDA-Public Use
  Company Number: IN-PFIZER INC-2019496450

PATIENT
  Age: 57 Year
  Sex: Female

DRUGS (16)
  1. PALBOCICLIB [Suspect]
     Active Substance: PALBOCICLIB
     Indication: Breast cancer metastatic
     Dosage: 125 MG, 1X/DAY
     Route: 048
     Dates: start: 20191108
  2. PALBOCICLIB [Suspect]
     Active Substance: PALBOCICLIB
     Dosage: 100 MG, CYCLIC
     Route: 048
     Dates: start: 20191109
  3. PALBOCICLIB [Suspect]
     Active Substance: PALBOCICLIB
     Dosage: UNK
     Route: 048
     Dates: start: 201911
  4. PALBOCICLIB [Suspect]
     Active Substance: PALBOCICLIB
     Dosage: 21/28 DAYS
     Dates: start: 20200722
  5. PALBOCICLIB [Suspect]
     Active Substance: PALBOCICLIB
     Dosage: 125 MG, CYCLIC
     Dates: start: 20210624
  6. PALBOCICLIB [Suspect]
     Active Substance: PALBOCICLIB
     Dosage: 100 MG, CYCLIC
     Route: 048
  7. PALBOCICLIB [Suspect]
     Active Substance: PALBOCICLIB
     Dosage: 250 MG, CYCLIC
     Route: 048
  8. PALBOCICLIB [Suspect]
     Active Substance: PALBOCICLIB
     Dosage: ONCE DAILY (1-0-0), 21 DAYS
     Route: 048
  9. PALBOCICLIB [Suspect]
     Active Substance: PALBOCICLIB
     Dosage: (1-0-0) 21D
     Route: 048
     Dates: start: 20231130
  10. COLSTIM [Concomitant]
     Dosage: 300 MG
     Route: 058
  11. LETROZOLE [Concomitant]
     Active Substance: LETROZOLE
     Dosage: 2.5 (IN MORNING FOR 30DAY, 1-0-0)
  12. CALCIUM\CHOLECALCIFEROL [Concomitant]
     Active Substance: CALCIUM\CHOLECALCIFEROL
     Dosage: 500 (IN MORNING FOR 30DAY, 1-0-0)
  13. PAN [Concomitant]
     Dosage: 40 (IN MORNING FOR 30DAY)
  14. NEUKINE [Concomitant]
     Dosage: 300 MG, 1X/DAY (X2D)
  15. NEUKINE [Concomitant]
     Dosage: 300 MG, ON D22
     Route: 058
  16. CETCAL [Concomitant]
     Dosage: (500) 1-0-0 30 D

REACTIONS (13)
  - Incisional hernia [Unknown]
  - White blood cell count decreased [Not Recovered/Not Resolved]
  - Platelet count decreased [Not Recovered/Not Resolved]
  - Stress [Recovered/Resolved]
  - Haemoglobin decreased [Not Recovered/Not Resolved]
  - Red blood cell count decreased [Unknown]
  - Mean cell volume increased [Unknown]
  - Mean cell haemoglobin increased [Unknown]
  - Cough [Unknown]
  - COVID-19 [Unknown]
  - Upper respiratory tract infection [Unknown]
  - Off label use [Unknown]
  - Off label use [Unknown]
